FAERS Safety Report 4642049-X (Version None)
Quarter: 2005Q2

REPORT INFORMATION
  Report Type: 
  Country: None (occurrence: None)
  Receive Date: 20050421
  Receipt Date: 20050405
  Transmission Date: 20051028
  Serious: Yes (Death, Life-Threatening, Hospitalization)
  Sender: FDA-Public Use
  Company Number: DE_050215282

PATIENT
  Age: 70 Year
  Sex: Male

DRUGS (2)
  1. GEMZAR [Suspect]
     Indication: PANCREATIC CARCINOMA
     Dosage: 1000 MG/M2
     Route: 042
     Dates: start: 20050210
  2. MARCUMAR [Concomitant]

REACTIONS (7)
  - CARDIAC FAILURE [None]
  - CELLULITIS GANGRENOUS [None]
  - DEEP VEIN THROMBOSIS [None]
  - OEDEMA PERIPHERAL [None]
  - PARANEOPLASTIC SYNDROME [None]
  - SEPSIS [None]
  - SHOCK [None]
